FAERS Safety Report 4817648-2 (Version None)
Quarter: 2005Q3

REPORT INFORMATION
  Report Type: 
  Country: None (occurrence: None)
  Receive Date: 20050929
  Receipt Date: 20050628
  Transmission Date: 20060218
  Serious: No
  Sender: FDA-Public Use
  Company Number: 04P-163-0267507-00

PATIENT
  Age: 86 Year
  Sex: Female
  Weight: 49.8957 kg

DRUGS (12)
  1. HUMIRA [Suspect]
     Indication: RHEUMATOID ARTHRITIS
     Dosage: 40 MG, 1 IN 2 WK, SUBCUTANEOUS
     Route: 058
     Dates: start: 20040101
  2. ASPIRIN [Concomitant]
  3. POTASSIUM [Concomitant]
  4. ATORVASTATIN CALCIUM [Concomitant]
  5. LEFLUNOMIDE [Concomitant]
  6. ALPRAZOLAM [Concomitant]
  7. DARVOCET [Concomitant]
  8. ALENDRONATE SODIUM [Concomitant]
  9. ATENOLOL [Concomitant]
  10. FOLIC ACID [Concomitant]
  11. FUROSEMIDE [Concomitant]
  12. ISOSORBIDE [Concomitant]

REACTIONS (3)
  - BLISTER [None]
  - CONTUSION [None]
  - IMPAIRED HEALING [None]
